FAERS Safety Report 12851667 (Version 1)
Quarter: 2016Q4

REPORT INFORMATION
  Report Type: Spontaneous
  Country: US (occurrence: US)
  Receive Date: 20161017
  Receipt Date: 20161017
  Transmission Date: 20170207
  Serious: Yes (Hospitalization)
  Sender: FDA-Public Use
  Company Number: US-JNJFOC-20160902959

PATIENT
  Sex: Male

DRUGS (10)
  1. ATORVASTATIN [Concomitant]
     Active Substance: ATORVASTATIN
  2. SAW PALMETTO [Concomitant]
     Active Substance: SAW PALMETTO
  3. IMBRUVICA [Suspect]
     Active Substance: IBRUTINIB
     Indication: CHRONIC LYMPHOCYTIC LEUKAEMIA
     Route: 048
     Dates: start: 20151102
  4. ASPIRIN. [Concomitant]
     Active Substance: ASPIRIN
  5. FISH OIL [Concomitant]
     Active Substance: FISH OIL
  6. TAMSULOSIN [Concomitant]
     Active Substance: TAMSULOSIN
  7. VITAMIN C [Concomitant]
     Active Substance: ASCORBIC ACID
  8. THERAGRAN M [Concomitant]
     Active Substance: VITAMINS
  9. FINASTERIDE. [Concomitant]
     Active Substance: FINASTERIDE
  10. CAMELLIA SINENSIS [Concomitant]
     Active Substance: GREEN TEA LEAF

REACTIONS (1)
  - Pneumonia [Unknown]
